FAERS Safety Report 4457670-1 (Version None)
Quarter: 2004Q3

REPORT INFORMATION
  Report Type: 
  Country: None (occurrence: None)
  Receive Date: 20040922
  Receipt Date: 20040915
  Transmission Date: 20050211
  Serious: Yes (Hospitalization)
  Sender: FDA-Public Use
  Company Number: MK200409-0144-1

PATIENT
  Age: 79 Year
  Sex: Male

DRUGS (2)
  1. ANAFRANIL CAP [Suspect]
     Dosage: 25MG, DAILY
  2. MIANSERIN HCL [Concomitant]

REACTIONS (4)
  - CONSTIPATION [None]
  - INAPPROPRIATE ANTIDIURETIC HORMONE SECRETION [None]
  - SOMNOLENCE [None]
  - THIRST [None]
